FAERS Safety Report 9912593 (Version 1)
Quarter: 2014Q1

REPORT INFORMATION
  Report Type: Spontaneous
  Country: US (occurrence: None)
  Receive Date: 20140218
  Receipt Date: 20140218
  Transmission Date: 20141002
  Serious: Yes (Other)
  Sender: FDA-Public Use
  Company Number: None

PATIENT
  Age: 42 Year
  Sex: Female
  Weight: 47.63 kg

DRUGS (7)
  1. DAYTRANA [Suspect]
     Indication: ATTENTION DEFICIT/HYPERACTIVITY DISORDER
     Dosage: PATCH
     Route: 061
     Dates: start: 20140204, end: 20140206
  2. DAYTRANA [Suspect]
     Indication: ATTENTION DEFICIT/HYPERACTIVITY DISORDER
     Dosage: PATCH
     Route: 061
     Dates: start: 20140204, end: 20140206
  3. VENLAFAXINE [Concomitant]
  4. OXCARBAZINE [Concomitant]
  5. GEODON [Concomitant]
  6. SUBOXONE [Concomitant]
  7. LEXAPRO [Concomitant]

REACTIONS (2)
  - Rash [None]
  - Urticaria [None]
